FAERS Safety Report 18419439 (Version 2)
Quarter: 2020Q4

REPORT INFORMATION
  Report Type: Spontaneous
  Country: US (occurrence: US)
  Receive Date: 20201023
  Receipt Date: 20201204
  Transmission Date: 20210114
  Serious: No
  Sender: FDA-Public Use
  Company Number: US-GLAXOSMITHKLINE-US2020AMR206687

PATIENT
  Age: 65 Year
  Sex: Female

DRUGS (3)
  1. VENTOLIN HFA [Suspect]
     Active Substance: ALBUTEROL SULFATE
     Indication: PRODUCT USED FOR UNKNOWN INDICATION
     Dosage: UNK 2-3 TIMES DAILY FOR 2 WEEKS
  2. VENTOLIN HFA [Suspect]
     Active Substance: ALBUTEROL SULFATE
  3. ALBUTEROL SULFATE. [Suspect]
     Active Substance: ALBUTEROL SULFATE
     Indication: PRODUCT USED FOR UNKNOWN INDICATION
     Dosage: 2 PUFF(S) PRN

REACTIONS (6)
  - Product storage error [Unknown]
  - Wrong technique in device usage process [Unknown]
  - Dyspnoea [Unknown]
  - Drug ineffective [Unknown]
  - Expired product administered [Unknown]
  - Product complaint [Unknown]
